FAERS Safety Report 5473036-X (Version None)
Quarter: 2007Q4

REPORT INFORMATION
  Report Type: 
  Country: None (occurrence: None)
  Receive Date: 20071001
  Receipt Date: 20070205
  Transmission Date: 20080405
  Serious: No
  Sender: FDA-Public Use
  Company Number: US-ASTRAZENECA-2007UW02424

PATIENT
  Age: 57 Year
  Sex: Female
  Weight: 67.6 kg

DRUGS (4)
  1. ARIMIDEX [Suspect]
     Indication: BREAST CANCER
     Route: 048
  2. ARIMIDEX [Suspect]
     Route: 048
  3. OMEGA 3 [Concomitant]
  4. ASPIRIN [Concomitant]
     Dosage: 1/2 TABLET

REACTIONS (3)
  - VISION BLURRED [None]
  - VISUAL DISTURBANCE [None]
  - WEIGHT INCREASED [None]
